FAERS Safety Report 5864484-4 (Version None)
Quarter: 2008Q3

REPORT INFORMATION
  Report Type: 
  Country: None (occurrence: None)
  Receive Date: 20080829
  Receipt Date: 20080707
  Transmission Date: 20090109
  Serious: No
  Sender: FDA-Public Use
  Company Number: US-ABBOTT-08P-163-0460891-00

PATIENT
  Sex: Female

DRUGS (4)
  1. SIMCOR [Suspect]
     Indication: DRUG USE FOR UNKNOWN INDICATION
     Route: 048
     Dates: start: 20080602, end: 20080701
  2. SIMCOR [Suspect]
     Dosage: 1000/40MG
     Route: 048
     Dates: start: 20080702
  3. DOXYCYCLINE [Concomitant]
     Indication: DIVERTICULITIS
  4. FLUOXETINE [Concomitant]
     Indication: DEPRESSION
     Dates: start: 19980101

REACTIONS (6)
  - FEELING HOT [None]
  - FLUSHING [None]
  - PARAESTHESIA [None]
  - PRURITUS [None]
  - SLEEP DISORDER [None]
  - URTICARIA [None]
